FAERS Safety Report 9829712 (Version 2)
Quarter: 2014Q1

REPORT INFORMATION
  Report Type: Spontaneous
  Country: BR (occurrence: BR)
  Receive Date: 20140120
  Receipt Date: 20140203
  Transmission Date: 20141002
  Serious: Yes (Other)
  Sender: FDA-Public Use
  Company Number: BR-AMGEN-BRASP2014003247

PATIENT
  Age: 66 Year
  Sex: Female
  Weight: 80 kg

DRUGS (5)
  1. ENBREL [Suspect]
     Indication: RHEUMATOID ARTHRITIS
     Dosage: 50 MG, ONCE WEEKLY
     Route: 058
     Dates: start: 201211, end: 2013
  2. ENBREL [Suspect]
     Dosage: UNK
     Route: 058
     Dates: start: 201312
  3. ARAVA [Concomitant]
     Dosage: UNK
     Dates: start: 2004
  4. METICORTEN [Concomitant]
     Indication: ANALGESIC THERAPY
     Dosage: UNK
  5. CYMBALTA [Concomitant]
     Dosage: UNK

REACTIONS (4)
  - Intervertebral disc protrusion [Unknown]
  - Fear [Unknown]
  - Weight decreased [Unknown]
  - Dysstasia [Unknown]
